FAERS Safety Report 19457452 (Version 1)
Quarter: 2021Q2

REPORT INFORMATION
  Report Type: Spontaneous
  Country: US (occurrence: US)
  Receive Date: 20210624
  Receipt Date: 20210624
  Transmission Date: 20210717
  Serious: Yes (Life-Threatening, Hospitalization, Other)
  Sender: FDA-Public Use
  Company Number: US-LUPIN PHARMACEUTICALS INC.-2021-10188

PATIENT
  Age: 24 Year
  Sex: Female

DRUGS (5)
  1. TESTOSTERONE. [Suspect]
     Active Substance: TESTOSTERONE
     Indication: GENDER REASSIGNMENT THERAPY
     Dosage: UNK
     Route: 065
  2. METHOHEXITAL [Concomitant]
     Active Substance: METHOHEXITAL
     Route: 065
  3. METHOHEXITAL [Concomitant]
     Active Substance: METHOHEXITAL
     Indication: GENERAL ANAESTHESIA
     Dosage: 120 MILLIGRAM
     Route: 065
  4. SUCCINYLCHOLINE [Concomitant]
     Active Substance: SUCCINYLCHOLINE
     Indication: GENERAL ANAESTHESIA
     Dosage: 100 MILLIGRAM
     Route: 065
  5. REMIFENTANIL [Interacting]
     Active Substance: REMIFENTANIL
     Indication: GENERAL ANAESTHESIA
     Dosage: 200 MICROGRAM
     Route: 065

REACTIONS (3)
  - Cardiac arrest [Recovered/Resolved]
  - Bradycardia [Recovered/Resolved]
  - Drug interaction [Unknown]
